FAERS Safety Report 8121762 (Version 2)
Quarter: 2013Q3

REPORT INFORMATION
  Report Type: Spontaneous
  Country: US (occurrence: US)
  Receive Date: 20110906
  Receipt Date: 20130725
  Transmission Date: 20140515
  Serious: Yes (Other)
  Sender: FDA-Public Use
  Company Number: US-US-EMD SERONO, INC.-7079319

PATIENT
  Age: 47 Year
  Sex: Female

DRUGS (5)
  1. REBIF [Suspect]
     Indication: MULTIPLE SCLEROSIS
     Route: 058
     Dates: start: 20100309
  2. NEURONTIN [Concomitant]
     Indication: MUSCLE SPASMS
  3. TYLENOL W/CODEINE NO. 4 [Concomitant]
     Indication: PAIN
  4. OXYCODONE [Concomitant]
     Indication: PAIN
  5. OXYBUTYNIN                         /00538902/ [Concomitant]
     Indication: INCONTINENCE

REACTIONS (4)
  - Optic neuritis [Recovered/Resolved]
  - Adverse drug reaction [Recovered/Resolved]
  - Multiple sclerosis relapse [Unknown]
  - Influenza like illness [Not Recovered/Not Resolved]
